FAERS Safety Report 5623895-2 (Version None)
Quarter: 2008Q1

REPORT INFORMATION
  Report Type: 
  Country: None (occurrence: None)
  Receive Date: 20080207
  Receipt Date: 20080128
  Transmission Date: 20080703
  Serious: Yes (Disabling)
  Sender: FDA-Public Use
  Company Number: 2008AP000312

PATIENT
  Age: 45 Year
  Sex: Female

DRUGS (8)
  1. PAROXETINE HCL [Suspect]
     Indication: DEPRESSION
     Dosage: 2 MG; TAB; PO; QD; 2 MG; TAB; PO; QD; 5 MG; TAB; PO; QD; 4.5 MG;TAB; PO; QD PO; 9 MG; TAB; PO; QOD;
     Route: 048
     Dates: start: 19990713
  2. PAROXETINE HCL [Suspect]
     Indication: DEPRESSION
     Dosage: 2 MG; TAB; PO; QD; 2 MG; TAB; PO; QD; 5 MG; TAB; PO; QD; 4.5 MG;TAB; PO; QD PO; 9 MG; TAB; PO; QOD;
     Route: 048
     Dates: start: 20000812
  3. PAROXETINE HCL [Suspect]
     Indication: DEPRESSION
     Dosage: 2 MG; TAB; PO; QD; 2 MG; TAB; PO; QD; 5 MG; TAB; PO; QD; 4.5 MG;TAB; PO; QD PO; 9 MG; TAB; PO; QOD;
     Route: 048
     Dates: start: 20010918
  4. PAROXETINE HCL [Suspect]
     Indication: DEPRESSION
     Dosage: 2 MG; TAB; PO; QD; 2 MG; TAB; PO; QD; 5 MG; TAB; PO; QD; 4.5 MG;TAB; PO; QD PO; 9 MG; TAB; PO; QOD;
     Route: 048
     Dates: start: 20010919
  5. PAROXETINE HCL [Suspect]
     Indication: DEPRESSION
     Dosage: 2 MG; TAB; PO; QD; 2 MG; TAB; PO; QD; 5 MG; TAB; PO; QD; 4.5 MG;TAB; PO; QD PO; 9 MG; TAB; PO; QOD;
     Route: 048
     Dates: start: 20020208
  6. PAROXETINE HCL [Suspect]
     Indication: DEPRESSION
     Dosage: 2 MG; TAB; PO; QD; 2 MG; TAB; PO; QD; 5 MG; TAB; PO; QD; 4.5 MG;TAB; PO; QD PO; 9 MG; TAB; PO; QOD;
     Route: 048
     Dates: start: 20040101
  7. PAROXETINE HCL [Suspect]
     Indication: DEPRESSION
     Dosage: 2 MG; TAB; PO; QD; 2 MG; TAB; PO; QD; 5 MG; TAB; PO; QD; 4.5 MG;TAB; PO; QD PO; 9 MG; TAB; PO; QOD;
     Route: 048
     Dates: start: 20050512
  8. AMITRIPTYLINE HCL [Concomitant]

REACTIONS (18)
  - ABDOMINAL PAIN [None]
  - ABNORMAL BEHAVIOUR [None]
  - ANXIETY [None]
  - CONFUSIONAL STATE [None]
  - DEPRESSION [None]
  - DIZZINESS [None]
  - FATIGUE [None]
  - FEELING COLD [None]
  - HYPERHIDROSIS [None]
  - INSOMNIA [None]
  - INTENTIONAL SELF-INJURY [None]
  - MULTIPLE INJURIES [None]
  - NAUSEA [None]
  - PANIC ATTACK [None]
  - PSYCHIATRIC SYMPTOM [None]
  - SUICIDAL IDEATION [None]
  - VULVOVAGINAL DISCOMFORT [None]
  - WITHDRAWAL SYNDROME [None]
